FAERS Safety Report 4476650-3 (Version None)
Quarter: 2004Q4

REPORT INFORMATION
  Report Type: 
  Country: None (occurrence: None)
  Receive Date: 20041015
  Receipt Date: 20041015
  Transmission Date: 20050328
  Serious: No
  Sender: FDA-Public Use
  Company Number: None

PATIENT
  Sex: Female
  Weight: 40.8237 kg

DRUGS (1)
  1. VIOXX USUAL- ON A DAY MERCK [Suspect]
     Indication: PAIN
     Dosage: ONE A DAY ORAL
     Route: 048
     Dates: start: 20030201, end: 20041010

REACTIONS (2)
  - BLOOD PRESSURE INCREASED [None]
  - RENAL IMPAIRMENT [None]
